FAERS Safety Report 12909281 (Version 2)
Quarter: 2017Q4

REPORT INFORMATION
  Report Type: Spontaneous
  Country: US (occurrence: US)
  Receive Date: 20161104
  Receipt Date: 20171003
  Transmission Date: 20180320
  Serious: Yes (Other)
  Sender: FDA-Public Use
  Company Number: US-AMGEN-USASP2016151293

PATIENT

DRUGS (4)
  1. XGEVA [Suspect]
     Active Substance: DENOSUMAB
     Indication: PRODUCT USED FOR UNKNOWN INDICATION
     Dosage: UNK UNK, Q6WK
     Route: 065
     Dates: start: 2014
  2. IBRANCE [Concomitant]
     Active Substance: PALBOCICLIB
  3. FEMARA [Concomitant]
     Active Substance: LETROZOLE
     Dosage: UNK
     Dates: start: 20150305
  4. TAXOL [Concomitant]
     Active Substance: PACLITAXEL
     Dosage: UNK
     Dates: start: 20160109

REACTIONS (3)
  - Gingival recession [Unknown]
  - Osteonecrosis of jaw [Unknown]
  - Infection [Unknown]
